FAERS Safety Report 5093008-7 (Version None)
Quarter: 2006Q3

REPORT INFORMATION
  Report Type: 
  Country: None (occurrence: None)
  Receive Date: 20060830
  Receipt Date: 20060828
  Transmission Date: 20061208
  Serious: Yes (Other)
  Sender: FDA-Public Use
  Company Number: 001#1#2006-00354

PATIENT
  Age: 38 Year
  Sex: Female

DRUGS (1)
  1. ADVAIR DISKUS 100/50 [Suspect]
     Dosage: 300MCG TWICE PER DAY
     Route: 055
     Dates: start: 20060201, end: 20060820

REACTIONS (1)
  - MUSCLE CONTRACTIONS INVOLUNTARY [None]
